FAERS Safety Report 20630851 (Version 2)
Quarter: 2022Q2

REPORT INFORMATION
  Report Type: Spontaneous
  Country: US (occurrence: US)
  Receive Date: 20220324
  Receipt Date: 20220405
  Transmission Date: 20220720
  Serious: Yes (Hospitalization)
  Sender: FDA-Public Use
  Company Number: US-TEVA-2022-US-2018855

PATIENT
  Age: 5 Week
  Sex: Female

DRUGS (2)
  1. PROPRANOLOL [Suspect]
     Active Substance: PROPRANOLOL HYDROCHLORIDE
     Indication: Infantile haemangioma
     Dosage: 1.5 MG/KG DAILY; 0.5 MG/KG/DAY DIVIDED THREE TIMES DAILY
     Route: 065
  2. PROPRANOLOL [Suspect]
     Active Substance: PROPRANOLOL HYDROCHLORIDE
     Indication: Ulcerated haemangioma
     Dosage: 1 MG/KG/DAY DIVIDED THREE TIMES DAILY
     Route: 065

REACTIONS (4)
  - Ulcerated haemangioma [Recovered/Resolved]
  - Infantile haemangioma [Recovered/Resolved]
  - Ulcer haemorrhage [Recovered/Resolved]
  - Paradoxical drug reaction [Recovered/Resolved]
